FAERS Safety Report 25970731 (Version 3)
Quarter: 2025Q4

REPORT INFORMATION
  Report Type: Report from Study
  Country: EU (occurrence: EU)
  Receive Date: 20251028
  Receipt Date: 20251111
  Transmission Date: 20260118
  Serious: Yes (Other)
  Sender: EMD SERONO INC
  Company Number: EU-Merck Healthcare KGaA-2025053814

PATIENT
  Sex: Female

DRUGS (4)
  1. MAVENCLAD [Suspect]
     Active Substance: CLADRIBINE
     Indication: Relapsing-remitting multiple sclerosis
     Dosage: YEAR ONE WEEK ONE THERAPY AT A DOSE OF 2 TABLETS ON DAY 1 AND 1 TABLETS ON DAYS 2 TO 5
     Dates: start: 20250930
  2. MAVENCLAD [Suspect]
     Active Substance: CLADRIBINE
     Dosage: YEAR ONE WEEK FIVE THERAPY AT A DOSE OF 2 TABLETS ON DAY 1 AND 1 TABLETS ON DAYS 2 TO 5
     Dates: start: 20251103
  3. OVREENA [Concomitant]
     Indication: Product used for unknown indication
  4. OVULATE-C [Concomitant]
     Indication: Product used for unknown indication

REACTIONS (3)
  - Lower respiratory tract infection [Recovered/Resolved]
  - Hypoaesthesia [Recovered/Resolved]
  - Peripheral coldness [Recovered/Resolved]
